FAERS Safety Report 11020208 (Version 2)
Quarter: 2015Q2

REPORT INFORMATION
  Report Type: Spontaneous
  Country: GB (occurrence: GB)
  Receive Date: 20150413
  Receipt Date: 20150429
  Transmission Date: 20150821
  Serious: Yes (Disabling, Other)
  Sender: FDA-Public Use
  Company Number: GB-CIPLA LTD.-2015GB02872

PATIENT

DRUGS (4)
  1. SERTRALINE [Suspect]
     Active Substance: SERTRALINE HYDROCHLORIDE
     Dosage: 100 MG, QD
     Route: 048
     Dates: start: 20150227, end: 20150317
  2. SERTRALINE [Suspect]
     Active Substance: SERTRALINE HYDROCHLORIDE
     Indication: BIPOLAR DISORDER
     Dosage: 50 MG, QD
     Route: 048
     Dates: start: 20150129, end: 20150317
  3. COCODAMOL [Concomitant]
     Active Substance: ACETAMINOPHEN\CODEINE PHOSPHATE
     Indication: PRODUCT USED FOR UNKNOWN INDICATION
     Route: 065
  4. GABAPENTIN. [Concomitant]
     Active Substance: GABAPENTIN
     Indication: PRODUCT USED FOR UNKNOWN INDICATION
     Dosage: 200 MG, BID

REACTIONS (17)
  - Drug ineffective [Not Recovered/Not Resolved]
  - Anger [Recovering/Resolving]
  - Malaise [Recovering/Resolving]
  - Dizziness [Unknown]
  - Wheezing [Recovering/Resolving]
  - Oxygen saturation decreased [Unknown]
  - Feeling hot [Unknown]
  - Dysstasia [Recovering/Resolving]
  - Renal pain [Unknown]
  - Hyperhidrosis [Recovering/Resolving]
  - Thinking abnormal [Unknown]
  - Pyrexia [Recovering/Resolving]
  - Product substitution issue [Not Recovered/Not Resolved]
  - Fatigue [Unknown]
  - Depression [Not Recovered/Not Resolved]
  - Oropharyngeal pain [Recovering/Resolving]
  - Abdominal tenderness [Unknown]

NARRATIVE: CASE EVENT DATE: 2015
